FAERS Safety Report 9921992 (Version 5)
Quarter: 2014Q2

REPORT INFORMATION
  Report Type: Spontaneous
  Country: US (occurrence: US)
  Receive Date: 20140225
  Receipt Date: 20140627
  Transmission Date: 20141212
  Serious: Yes (Death, Hospitalization)
  Sender: FDA-Public Use
  Company Number: US-INCYTE CORPORATION-2014IN000462

PATIENT
  Age: 82 Year
  Sex: Male

DRUGS (6)
  1. JAKAFI [Suspect]
     Indication: MYELOFIBROSIS
     Dosage: 15 MG, QD
     Route: 048
     Dates: start: 20130620, end: 201402
  2. JAKAFI [Suspect]
     Indication: SPLENOMEGALY
     Dosage: 5 MG, BID
     Route: 048
  3. NEXIUM                             /01479302/ [Concomitant]
  4. NORVASC [Concomitant]
  5. VALSARTAN [Concomitant]
  6. CYCLOBENZAPRINE [Concomitant]

REACTIONS (3)
  - Disseminated intravascular coagulation [Fatal]
  - Disease progression [Fatal]
  - Drug ineffective [Unknown]
